FAERS Safety Report 11314212 (Version 2)
Quarter: 2015Q3

REPORT INFORMATION
  Report Type: Spontaneous
  Country: JP (occurrence: JP)
  Receive Date: 20150727
  Receipt Date: 20150807
  Transmission Date: 20151125
  Serious: Yes (Hospitalization, Other)
  Sender: FDA-Public Use
  Company Number: JP-BAYER-2015-381361

PATIENT
  Age: 34 Year
  Sex: Female

DRUGS (2)
  1. BAYASPIRIN [Suspect]
     Active Substance: ASPIRIN
     Indication: THROMBOSIS PROPHYLAXIS
     Dosage: 100 MG, QD
     Route: 048
  2. UNFRACTIONATED HEPARIN [Interacting]
     Active Substance: HEPARIN SODIUM
     Route: 058

REACTIONS (7)
  - Genital haemorrhage [Recovered/Resolved]
  - Maternal exposure during pregnancy [Recovered/Resolved]
  - Gestational hypertension [None]
  - Labelled drug-drug interaction medication error [None]
  - Antithrombin III decreased [Recovering/Resolving]
  - Hypertensive nephropathy [None]
  - Threatened labour [Recovered/Resolved]
